FAERS Safety Report 4936808-3 (Version None)
Quarter: 2006Q1

REPORT INFORMATION
  Report Type: 
  Country: None (occurrence: None)
  Receive Date: 20060307
  Receipt Date: 20050607
  Transmission Date: 20060701
  Serious: Yes (Hospitalization, Disabling)
  Sender: FDA-Public Use
  Company Number: US-MERCK-0506USA01089

PATIENT
  Age: 71 Year
  Sex: Female
  Weight: 52 kg

DRUGS (11)
  1. VIOXX [Suspect]
     Indication: ARTHRITIS
     Route: 048
     Dates: start: 19991216, end: 20000607
  2. VIOXX [Suspect]
     Route: 048
     Dates: start: 20000607
  3. VIOXX [Suspect]
     Indication: MYOFASCIAL PAIN SYNDROME
     Route: 048
     Dates: start: 19990902, end: 19990910
  4. VIOXX [Suspect]
     Route: 048
     Dates: start: 19990910, end: 19991216
  5. VIOXX [Suspect]
     Route: 048
     Dates: start: 19991216, end: 20000607
  6. VIOXX [Suspect]
     Route: 048
     Dates: start: 20000607
  7. ZESTRIL [Concomitant]
     Route: 065
  8. PREMARIN [Concomitant]
     Route: 065
  9. CELEBREX [Concomitant]
     Route: 048
  10. VIOXX [Suspect]
     Route: 048
     Dates: start: 19990910, end: 19991216
  11. VIOXX [Suspect]
     Route: 048
     Dates: start: 19990902, end: 19990910

REACTIONS (56)
  - ABDOMINAL PAIN UPPER [None]
  - ANOREXIA [None]
  - AORTIC VALVE INCOMPETENCE [None]
  - ARTHRITIS [None]
  - AUTOIMMUNE DISORDER [None]
  - BLADDER PROLAPSE [None]
  - BLOOD PRESSURE INCREASED [None]
  - CARDIAC DISORDER [None]
  - CAROTID ARTERY STENOSIS [None]
  - CATARACT [None]
  - CEREBROVASCULAR ACCIDENT [None]
  - CERVICOBRACHIAL SYNDROME [None]
  - CHEST PAIN [None]
  - CONSTIPATION [None]
  - DEPRESSED LEVEL OF CONSCIOUSNESS [None]
  - DERMATITIS CONTACT [None]
  - DIARRHOEA [None]
  - DIVERTICULUM [None]
  - DYSARTHRIA [None]
  - EYE DISORDER [None]
  - FEMORAL HERNIA [None]
  - FUNGAL INFECTION [None]
  - FUNGAL RASH [None]
  - HEPATIC CYST [None]
  - HYPERLIPIDAEMIA [None]
  - HYPERTENSION [None]
  - HYPOAESTHESIA [None]
  - HYPOTHYROIDISM [None]
  - INJURY [None]
  - INTERTRIGO [None]
  - JOINT SPRAIN [None]
  - LACUNAR INFARCTION [None]
  - MACULAR DEGENERATION [None]
  - MALIGNANT HYPERTENSION [None]
  - MITRAL VALVE INCOMPETENCE [None]
  - MUSCULOSKELETAL CHEST PAIN [None]
  - NECK PAIN [None]
  - OEDEMA PERIPHERAL [None]
  - ONYCHOLYSIS [None]
  - OSTEOARTHRITIS [None]
  - OSTEOPOROSIS [None]
  - PAIN [None]
  - PEPTIC ULCER [None]
  - PLANTAR FASCIITIS [None]
  - PULMONARY HYPERTENSION [None]
  - RASH PRURITIC [None]
  - RENAL CYST [None]
  - SHOULDER PAIN [None]
  - SPINAL COMPRESSION FRACTURE [None]
  - SPINAL OSTEOARTHRITIS [None]
  - TOOTH INFECTION [None]
  - TRANSIENT ISCHAEMIC ATTACK [None]
  - TRICUSPID VALVE INCOMPETENCE [None]
  - UPPER RESPIRATORY TRACT CONGESTION [None]
  - VISION BLURRED [None]
  - WEIGHT DECREASED [None]
